FAERS Safety Report 6358824-X (Version None)
Quarter: 2009Q3

REPORT INFORMATION
  Report Type: 
  Country: None (occurrence: None)
  Receive Date: 20090914
  Receipt Date: 20090902
  Transmission Date: 20100115
  Serious: No
  Sender: FDA-Public Use
  Company Number: 230093J09USA

PATIENT
  Age: 48 Year
  Sex: Female
  Weight: 52 kg

DRUGS (3)
  1. REBIF [Suspect]
     Indication: MULTIPLE SCLEROSIS
     Dosage: 22 MCG, 3 IN 1 WEEKS, SUBCUTANEOUS
     Route: 058
     Dates: start: 20090319
  2. IBUPROFEN [Suspect]
     Indication: PREMEDICATION
  3. STATINS-(CHOLESTEROL - AND TRIGLYCERIDE REDUCERS) [Concomitant]

REACTIONS (1)
  - SOMNOLENCE [None]
